FAERS Safety Report 20707037 (Version 1)
Quarter: 2022Q2

REPORT INFORMATION
  Report Type: Spontaneous
  Country: GB (occurrence: GB)
  Receive Date: 20220413
  Receipt Date: 20220413
  Transmission Date: 20220721
  Serious: Yes (Disabling, Other)
  Sender: FDA-Public Use
  Company Number: GB-BAUSCH-BL-2022-009000

PATIENT
  Sex: Female

DRUGS (8)
  1. HYDROCORTISONE BUTYRATE [Suspect]
     Active Substance: HYDROCORTISONE BUTYRATE
     Indication: Product used for unknown indication
     Route: 065
  2. HYDROCORTISONE BUTYRATE [Suspect]
     Active Substance: HYDROCORTISONE BUTYRATE
     Indication: Product used for unknown indication
     Route: 065
  3. ELIDEL [Suspect]
     Active Substance: PIMECROLIMUS
     Indication: Product used for unknown indication
     Route: 065
  4. BETAMETHASONE [Suspect]
     Active Substance: BETAMETHASONE
     Indication: Product used for unknown indication
     Route: 065
  5. CLOBETASOL [Suspect]
     Active Substance: CLOBETASOL
     Indication: Product used for unknown indication
     Route: 065
  6. EUMOVATE [Suspect]
     Active Substance: CLOBETASONE BUTYRATE
     Indication: Product used for unknown indication
     Route: 065
  7. BETAMETHASONE VALERATE\FUSIDIC ACID [Suspect]
     Active Substance: BETAMETHASONE VALERATE\FUSIDIC ACID
     Indication: Product used for unknown indication
     Route: 065
  8. PROTOPIC [Suspect]
     Active Substance: TACROLIMUS
     Indication: Product used for unknown indication
     Route: 065

REACTIONS (12)
  - Insomnia [Not Recovered/Not Resolved]
  - Skin weeping [Not Recovered/Not Resolved]
  - Skin fissures [Not Recovered/Not Resolved]
  - Skin weeping [Not Recovered/Not Resolved]
  - Pain of skin [Not Recovered/Not Resolved]
  - Blister [Not Recovered/Not Resolved]
  - Fatigue [Not Recovered/Not Resolved]
  - Dyshidrotic eczema [Not Recovered/Not Resolved]
  - Skin burning sensation [Not Recovered/Not Resolved]
  - Pruritus [Not Recovered/Not Resolved]
  - Skin atrophy [Not Recovered/Not Resolved]
  - Medication error [Unknown]

NARRATIVE: CASE EVENT DATE: 20210723
